FAERS Safety Report 10518501 (Version 4)
Quarter: 2015Q2

REPORT INFORMATION
  Report Type: Spontaneous
  Country: US (occurrence: US)
  Receive Date: 20141015
  Receipt Date: 20150610
  Transmission Date: 20150821
  Serious: Yes (Hospitalization, Other)
  Sender: FDA-Public Use
  Company Number: US-PFIZER INC-2014282806

PATIENT
  Age: 35 Year
  Sex: Male

DRUGS (9)
  1. MIRTAZAPINE. [Concomitant]
     Active Substance: MIRTAZAPINE
     Dosage: UNK
     Dates: start: 20140810, end: 20141115
  2. MIRTAZAPINE. [Concomitant]
     Active Substance: MIRTAZAPINE
     Dosage: 15 MG, 1X/DAY
     Dates: start: 20140820
  3. LYRICA [Suspect]
     Active Substance: PREGABALIN
     Indication: SKIN INJURY
  4. LYRICA [Suspect]
     Active Substance: PREGABALIN
     Indication: NERVE INJURY
     Dosage: 25 MG, 2X/DAY
     Dates: start: 20141002, end: 20141007
  5. LYRICA [Suspect]
     Active Substance: PREGABALIN
     Indication: NEURALGIA
  6. NEURONTIN [Concomitant]
     Active Substance: GABAPENTIN
     Dosage: TAPERING OFF
     Dates: start: 20141002, end: 20141010
  7. NEURONTIN [Concomitant]
     Active Substance: GABAPENTIN
     Dosage: UNK
     Dates: start: 20140912, end: 20141007
  8. LYRICA [Suspect]
     Active Substance: PREGABALIN
     Indication: PAIN
     Dosage: 25 MG, 2 TO 3 TIMES PER DAY
     Dates: start: 20141002, end: 20141007
  9. NEURONTIN [Concomitant]
     Active Substance: GABAPENTIN
     Dosage: 300-400MG PER DAY
     Dates: start: 20140912, end: 20141001

REACTIONS (5)
  - Gastrointestinal disorder [Unknown]
  - Vision blurred [Not Recovered/Not Resolved]
  - Dry eye [Recovered/Resolved]
  - Hypophagia [Unknown]
  - Abdominal distension [Not Recovered/Not Resolved]

NARRATIVE: CASE EVENT DATE: 201410
